FAERS Safety Report 10220948 (Version 1)
Quarter: 2014Q2

REPORT INFORMATION
  Report Type: Report from Study
  Country: CA (occurrence: CA)
  Receive Date: 20140606
  Receipt Date: 20140606
  Transmission Date: 20141212
  Serious: Yes (Hospitalization)
  Sender: FDA-Public Use
  Company Number: CA-JNJFOC-20140600587

PATIENT
  Age: 57 Year
  Sex: Female
  Weight: 96 kg

DRUGS (1)
  1. REMICADE [Suspect]
     Indication: RHEUMATOID ARTHRITIS
     Route: 042
     Dates: start: 2002

REACTIONS (3)
  - Salmonellosis [Recovered/Resolved]
  - Sepsis [Recovered/Resolved]
  - Urinary tract infection [Recovered/Resolved]
